FAERS Safety Report 19483689 (Version 1)
Quarter: 2021Q3

REPORT INFORMATION
  Report Type: Spontaneous
  Country: US (occurrence: US)
  Receive Date: 20210701
  Receipt Date: 20210701
  Transmission Date: 20211014
  Serious: No
  Sender: FDA-Public Use
  Company Number: US-ROCHE-2618841

PATIENT
  Sex: Female

DRUGS (9)
  1. KLONOPIN [Suspect]
     Active Substance: CLONAZEPAM
     Indication: AGORAPHOBIA
  2. CLONAZEPAM. [Suspect]
     Active Substance: CLONAZEPAM
     Indication: ANXIETY DISORDER
     Dosage: AT QUARTER OF 0.5 MG TABLET
     Route: 048
     Dates: start: 2018
  3. CLONAZEPAM. [Suspect]
     Active Substance: CLONAZEPAM
     Indication: DEPRESSION
  4. KLONOPIN [Suspect]
     Active Substance: CLONAZEPAM
     Indication: PETIT MAL EPILEPSY
  5. KLONOPIN [Suspect]
     Active Substance: CLONAZEPAM
     Indication: ANXIETY DISORDER
     Dosage: EIGHTH OF 1 MG TABLET ON AS NEEDED BASIS
     Route: 048
     Dates: start: 1992
  6. KLONOPIN [Suspect]
     Active Substance: CLONAZEPAM
     Indication: DEPRESSION
  7. CLONAZEPAM. [Suspect]
     Active Substance: CLONAZEPAM
     Indication: SEIZURE
  8. TOFRANIL [Concomitant]
     Active Substance: IMIPRAMINE HYDROCHLORIDE
  9. GABAPENTIN. [Concomitant]
     Active Substance: GABAPENTIN

REACTIONS (7)
  - Intentional product use issue [Unknown]
  - Urticaria [Recovered/Resolved]
  - Off label use [Unknown]
  - Sedation [Not Recovered/Not Resolved]
  - Fatigue [Not Recovered/Not Resolved]
  - Drug ineffective [Unknown]
  - Somnolence [Not Recovered/Not Resolved]

NARRATIVE: CASE EVENT DATE: 2018
